FAERS Safety Report 23801560 (Version 5)
Quarter: 2024Q4

REPORT INFORMATION
  Report Type: Report from Study
  Country: KR (occurrence: KR)
  Receive Date: 20240430
  Receipt Date: 20241014
  Transmission Date: 20250114
  Serious: Yes (Hospitalization)
  Sender: ABBVIE
  Company Number: KR-ABBVIE-5736116

PATIENT
  Age: 67 Year
  Sex: Female
  Weight: 70 kg

DRUGS (24)
  1. SKYRIZI [Suspect]
     Active Substance: RISANKIZUMAB-RZAA
     Indication: Psoriasis
     Dosage: FREQUENCY TEXT: ONCE
     Route: 058
     Dates: start: 20230523, end: 20230523
  2. SKYRIZI [Suspect]
     Active Substance: RISANKIZUMAB-RZAA
     Dosage: FREQUENCY TEXT: ONCE
     Route: 058
     Dates: start: 20221206, end: 20221206
  3. SKYRIZI [Suspect]
     Active Substance: RISANKIZUMAB-RZAA
     Dosage: FREQUENCY TEXT: ONCE
     Route: 058
     Dates: start: 20221101, end: 20221101
  4. SKYRIZI [Suspect]
     Active Substance: RISANKIZUMAB-RZAA
     Route: 058
     Dates: start: 20230817, end: 20230817
  5. SKYRIZI [Suspect]
     Active Substance: RISANKIZUMAB-RZAA
     Dosage: FREQUENCY TEXT: ONCE
     Route: 058
     Dates: start: 20230228, end: 20230228
  6. SKYRIZI [Suspect]
     Active Substance: RISANKIZUMAB-RZAA
     Dosage: FREQUENCY TEXT: ONCE
     Route: 058
     Dates: start: 20231109, end: 20231109
  7. DIABEX [Concomitant]
     Active Substance: METFORMIN HYDROCHLORIDE
     Indication: Diabetes mellitus
     Dosage: 500MG(METFORMIN HYDROCHLORIDE 500 MG)
     Route: 048
     Dates: start: 20210602, end: 20230514
  8. Dulcolax [Concomitant]
     Indication: Bowel preparation
     Dosage: FREQUENCY ONCE BISACODYL 10MG
     Route: 054
     Dates: start: 20240417, end: 20240417
  9. LECLEAN [Concomitant]
     Indication: Bowel preparation
     Dosage: FREQUENCY ONCE
     Route: 054
     Dates: start: 20240417, end: 20240417
  10. NEXIUM [Concomitant]
     Active Substance: ESOMEPRAZOLE MAGNESIUM
     Indication: Gastrointestinal disorder prophylaxis
     Route: 048
     Dates: start: 20240419, end: 20240425
  11. BETAMETHASONE DIPROPIONATE\CALCIPOTRIENE HYDRATE [Concomitant]
     Active Substance: BETAMETHASONE DIPROPIONATE\CALCIPOTRIENE HYDRATE
     Indication: Psoriasis
     Dosage: UNIT DOSE: UNKNOWN GRAM?FREQUENCY TEXT: PRN, (BOTTLE)
     Route: 061
     Dates: start: 20210907, end: 20221101
  12. BETAMETHASONE DIPROPIONATE\CALCIPOTRIENE HYDRATE [Concomitant]
     Active Substance: BETAMETHASONE DIPROPIONATE\CALCIPOTRIENE HYDRATE
     Indication: Psoriasis
     Dosage: UNIT DOSE: UNKNOWN GRAM?FREQUENCY TEXT: PRN, (BOTTLE)
     Route: 061
     Dates: start: 20240201, end: 20240424
  13. GEMIGLIPTIN\METFORMIN [Concomitant]
     Active Substance: GEMIGLIPTIN\METFORMIN
     Indication: Diabetes mellitus
     Dosage: ZEMIMET SR 25/1000MG
     Route: 048
     Dates: start: 20240320
  14. ROISOL [Concomitant]
     Indication: Prophylaxis
     Dosage: FREQUENCY ONCE AMBROXOL HYDROCHLORIDE 15MG/2ML
     Route: 042
     Dates: start: 20240418, end: 20240418
  15. ENSTILUM [Concomitant]
     Indication: Psoriasis
     Dosage: UNIT DOSE: UNKNOWN GRAM?ENSTILUM FOAM - FREQUENCY TEXT: PRN
     Route: 061
     Dates: start: 20190122, end: 20221101
  16. GLIMEPIRIDE\METFORMIN [Concomitant]
     Active Substance: GLIMEPIRIDE\METFORMIN
     Indication: Diabetes mellitus
     Dosage: 2/500MG, 2/500MG(GLIMEPIRIDE 2 MG, METFORMIN HYDROCHLORIDE 500 MG)
     Route: 048
     Dates: start: 20180614, end: 20230514
  17. EZETIMIBE\PITAVASTATIN CALCIUM [Concomitant]
     Active Substance: EZETIMIBE\PITAVASTATIN CALCIUM
     Indication: Dyslipidaemia
     Dosage: 2/10MG
     Route: 048
     Dates: start: 20220921
  18. LANSOPRAZOLE [Concomitant]
     Active Substance: LANSOPRAZOLE
     Indication: Gastrointestinal disorder prophylaxis
     Dosage: LANSOPRAZOLE GRANULE 185MG(15MG AS LANSOPRAZOLE)
     Route: 048
     Dates: start: 20231213, end: 20231220
  19. LANSOPRAZOLE [Concomitant]
     Active Substance: LANSOPRAZOLE
     Indication: Gastrointestinal disorder prophylaxis
     Dosage: LANSOPRAZOLE GRANULE 18MG(15MG AS LANSOPRAZOLE)
     Route: 048
     Dates: start: 20231130, end: 20231204
  20. RAMOSETRON HYDROCHLORIDE [Concomitant]
     Active Substance: RAMOSETRON HYDROCHLORIDE
     Indication: Prophylaxis of nausea and vomiting
     Dosage: FREQUENCY ONCE RAMOSETRON HYDROCHLORIDE 0.3MG/2ML
     Route: 042
     Dates: start: 20240418, end: 20240418
  21. Dong a gaster [Concomitant]
     Indication: Gastrointestinal disorder prophylaxis
     Dosage: FREQUENCY ONCE FAMOTIDINE 20MG
     Route: 042
     Dates: start: 20240418, end: 20240418
  22. NORZYME [Concomitant]
     Indication: Gastrointestinal disorder prophylaxis
     Dosage: FREQUENCY ONCE PANCREATIN ENTERIC COATED PELLETS 440MG
     Route: 048
     Dates: start: 20240419, end: 20240419
  23. XYZAL [Concomitant]
     Active Substance: LEVOCETIRIZINE DIHYDROCHLORIDE
     Indication: Urticaria
     Dosage: XYZAL TAB 5MG(LEVOCETIRIZINE HYDROCHLORIDE 5 MG),?FREQUENCY TEXT: PRN
     Route: 048
     Dates: start: 20230523, end: 202312
  24. EMPAGLIFLOZIN\METFORMIN HYDROCHLORIDE [Concomitant]
     Active Substance: EMPAGLIFLOZIN\METFORMIN HYDROCHLORIDE
     Indication: Diabetes mellitus
     Dosage: 5/1000MG
     Route: 048
     Dates: start: 20230515, end: 20240319

REACTIONS (1)
  - Calculus urinary [Recovered/Resolved]

NARRATIVE: CASE EVENT DATE: 20231130
